FAERS Safety Report 20866317 (Version 1)
Quarter: 2022Q2

REPORT INFORMATION
  Report Type: Spontaneous
  Country: US (occurrence: US)
  Receive Date: 20220524
  Receipt Date: 20220524
  Transmission Date: 20220721
  Serious: No
  Sender: FDA-Public Use
  Company Number: None

PATIENT
  Age: 73 Year
  Sex: Female

DRUGS (2)
  1. REVLIMID [Suspect]
     Active Substance: LENALIDOMIDE
     Indication: Plasma cell myeloma
     Dosage: 21 DAYS ON AND 7 DAYS OFF .
     Route: 048
     Dates: start: 20200121
  2. LATANOPROST SOL [Concomitant]
     Indication: Product used for unknown indication
     Route: 065

REACTIONS (2)
  - Blood test abnormal [Unknown]
  - Paraesthesia [Unknown]
